FAERS Safety Report 8142615-3 (Version None)
Quarter: 2012Q1

REPORT INFORMATION
  Report Type: 
  Country: None (occurrence: None)
  Receive Date: 20120216
  Receipt Date: 20120214
  Transmission Date: 20120608
  Serious: Yes (Hospitalization)
  Sender: FDA-Public Use
  Company Number: CA-B.I. PHARMACEUTICALS,INC./RIDGEFIELD-2012-CN-00299CN

PATIENT
  Age: 81 Year
  Sex: Male
  Weight: 72.57 kg

DRUGS (3)
  1. CHOLESTYRAMINE [Concomitant]
     Route: 048
  2. PRADAXA [Suspect]
     Dosage: 220 MG
     Route: 048
  3. METOPROLOL TARTRATE [Concomitant]
     Route: 048

REACTIONS (4)
  - OCCULT BLOOD POSITIVE [None]
  - FAECES DISCOLOURED [None]
  - HAEMOGLOBIN DECREASED [None]
  - LARGE INTESTINAL ULCER [None]
